FAERS Safety Report 9893223 (Version 2)
Quarter: 2015Q4

REPORT INFORMATION
  Report Type: Report from Study
  Country: BR (occurrence: BR)
  Receive Date: 20140213
  Receipt Date: 20151118
  Transmission Date: 20160305
  Serious: Yes (Death, Hospitalization, Other)
  Sender: FDA-Public Use
  Company Number: PHHY2014BR016518

PATIENT
  Sex: Female
  Weight: 55 kg

DRUGS (5)
  1. BACLOFEN. [Concomitant]
     Active Substance: BACLOFEN
     Indication: MULTIPLE SCLEROSIS
     Dosage: UNK UKN, Q8H
     Route: 065
     Dates: start: 2005
  2. PERIDONA//DOMPERIDONE [Concomitant]
     Indication: DYSPEPSIA
     Dosage: UNK UKN, QD
     Route: 065
     Dates: start: 2007
  3. MUVINLAX [Concomitant]
     Active Substance: ELECTROLYTES NOS\POLYETHYLENE GLYCOL 3350
     Indication: ABNORMAL FAECES
     Dosage: UNK UKN, QD
     Route: 065
  4. RETEMIC [Concomitant]
     Active Substance: OXYBUTYNIN
     Indication: DYSURIA
     Dosage: 1 DF, UNK
     Route: 065
     Dates: start: 2005
  5. GILENYA [Suspect]
     Active Substance: FINGOLIMOD HYDROCHLORIDE
     Indication: MULTIPLE SCLEROSIS
     Dosage: 0.5 MG, QD
     Route: 048

REACTIONS (6)
  - Diarrhoea [Fatal]
  - Limb discomfort [Unknown]
  - Dizziness [Unknown]
  - Urinary tract infection [Fatal]
  - Muscle atrophy [Unknown]
  - Weight decreased [Unknown]
